FAERS Safety Report 4441702-0 (Version None)
Quarter: 2004Q3

REPORT INFORMATION
  Report Type: 
  Country: None (occurrence: None)
  Receive Date: 20040728
  Receipt Date: 20040507
  Transmission Date: 20050211
  Serious: No
  Sender: FDA-Public Use
  Company Number: USA040567169

PATIENT
  Age: 24 Year
  Sex: Male
  Weight: 84 kg

DRUGS (2)
  1. STRATTERA [Suspect]
     Dosage: 320 MG DAY
     Dates: end: 20040401
  2. CREATINE [Concomitant]

REACTIONS (2)
  - INTENTIONAL MISUSE [None]
  - INTENTIONAL OVERDOSE [None]
